FAERS Safety Report 8125295-2 (Version None)
Quarter: 2012Q1

REPORT INFORMATION
  Report Type: 
  Country: None (occurrence: None)
  Receive Date: 20120206
  Receipt Date: 20120125
  Transmission Date: 20120608
  Serious: Yes (Death)
  Sender: FDA-Public Use
  Company Number: 2012MA001241

PATIENT
  Age: 41 Year
  Sex: Male

DRUGS (7)
  1. LEPTICUR [Concomitant]
  2. TRIMEPRAZINE TARTRATE [Concomitant]
  3. TERCIAN [Concomitant]
  4. UMOVANE [Concomitant]
  5. TRANSIPEG [Concomitant]
  6. CLONAZEPAM [Concomitant]
  7. HALOPERIDOL LACTATE [Suspect]

REACTIONS (5)
  - UPPER AIRWAY OBSTRUCTION [None]
  - ANGIOEDEMA [None]
  - LARYNGEAL OEDEMA [None]
  - URTICARIA [None]
  - ANAPHYLACTIC SHOCK [None]
